FAERS Safety Report 6992498-X (Version None)
Quarter: 2010Q3

REPORT INFORMATION
  Report Type: 
  Country: None (occurrence: None)
  Receive Date: 20100916
  Receipt Date: 20100916
  Transmission Date: 20110219
  Serious: Yes (Other)
  Sender: FDA-Public Use
  Company Number: None

PATIENT
  Age: 67 Year
  Sex: Male
  Weight: 72.5755 kg

DRUGS (1)
  1. CHLORHEXIDINE GLUCONATE ORAL RINSE 0.12% G.U.M. -SUNSTAR BUTLER- [Suspect]
     Indication: ORAL SURGERY
     Dosage: ORAL RINSE 3 TO 4 TIMES DAILY PO
     Route: 048
     Dates: start: 20100914, end: 20100915

REACTIONS (3)
  - DYSGEUSIA [None]
  - FEELING ABNORMAL [None]
  - LIP SWELLING [None]
